FAERS Safety Report 8439987-9 (Version None)
Quarter: 2012Q2

REPORT INFORMATION
  Report Type: 
  Country: None (occurrence: None)
  Receive Date: 20120615
  Receipt Date: 20120613
  Transmission Date: 20120825
  Serious: Yes (Hospitalization, Disabling)
  Sender: FDA-Public Use
  Company Number: US-PFIZER INC-2012077580

PATIENT
  Sex: Female
  Weight: 68.027 kg

DRUGS (6)
  1. CELEBREX [Suspect]
     Indication: JOINT SWELLING
  2. ATENOLOL [Concomitant]
     Indication: HYPERTENSION
     Dosage: 25 MG, 2X/DAY
  3. CELEBREX [Suspect]
  4. HYDROCHLOROTHIAZIDE [Concomitant]
     Indication: HYPERTENSION
     Dosage: 25 MG, DAILY
  5. CELEBREX [Suspect]
     Indication: ARTHRALGIA
     Dosage: 200 MG, DAILY
     Route: 048
     Dates: start: 20120309, end: 20120312
  6. CELEBREX [Suspect]
     Indication: MUSCULOSKELETAL PAIN

REACTIONS (4)
  - CEREBROVASCULAR ACCIDENT [None]
  - DYSPHONIA [None]
  - AMNESIA [None]
  - HEADACHE [None]
